FAERS Safety Report 17112680 (Version 2)
Quarter: 2020Q1

REPORT INFORMATION
  Report Type: Spontaneous
  Country: US (occurrence: US)
  Receive Date: 20191204
  Receipt Date: 20200304
  Transmission Date: 20200409
  Serious: No
  Sender: FDA-Public Use
  Company Number: US-PTC THERAPEUTICS, INC.-US-2019PTC001382

PATIENT
  Age: 8 Year
  Sex: Male

DRUGS (10)
  1. CALCIUM CARBONATE. [Concomitant]
     Active Substance: CALCIUM CARBONATE
     Indication: PRODUCT USED FOR UNKNOWN INDICATION
     Dosage: 500 MG, QD
     Route: 048
  2. ALBUTEROL                          /00139501/ [Concomitant]
     Active Substance: ALBUTEROL
     Indication: PRODUCT USED FOR UNKNOWN INDICATION
     Dosage: 3 ML, NEBULIZED INHALATION EVERY 4 HOURS, WHEN SICK WITH CHEST PT
     Route: 055
  3. CORTEF [Concomitant]
     Active Substance: HYDROCORTISONE
     Indication: PRODUCT USED FOR UNKNOWN INDICATION
     Dosage: 50 MG, QD, FREE INJECTION
     Route: 030
  4. EMFLAZA [Suspect]
     Active Substance: DEFLAZACORT
     Indication: DUCHENNE MUSCULAR DYSTROPHY
     Dosage: 18 MG, QD
     Route: 048
     Dates: start: 20191011, end: 20191011
  5. EMFLAZA [Suspect]
     Active Substance: DEFLAZACORT
     Indication: MUSCULAR DYSTROPHY
     Dosage: 9 MG, SINGLE
     Dates: start: 20191015
  6. MULTIVITAMINUM [Concomitant]
     Active Substance: VITAMINS
     Indication: PRODUCT USED FOR UNKNOWN INDICATION
     Dosage: 1 TABLET, CHEWED, QD
     Route: 048
  7. PEDIASURE                          /07459601/ [Concomitant]
     Indication: DUCHENNE MUSCULAR DYSTROPHY
     Dosage: 5 CANS PER DAY
  8. CHOLECALCIFEROL [Concomitant]
     Active Substance: CHOLECALCIFEROL
     Indication: PRODUCT USED FOR UNKNOWN INDICATION
     Dosage: 1200 UNITS (3 DROPS), QD
     Route: 048
  9. ACETAMINOPHEN. [Concomitant]
     Active Substance: ACETAMINOPHEN
     Indication: PRODUCT USED FOR UNKNOWN INDICATION
     Dosage: 240 MG, CHEWED, EVERY 4 HOURS AS NEEED FOR PAIN OR FEVER
     Route: 048
  10. IBUPROFEN. [Concomitant]
     Active Substance: IBUPROFEN
     Indication: PRODUCT USED FOR UNKNOWN INDICATION
     Dosage: 200 MG, EVERY 6 HOURS AS NEEDED FOR FEVER OR PAIN, CHEWED
     Route: 048

REACTIONS (9)
  - Feeling abnormal [Unknown]
  - Social avoidant behaviour [Unknown]
  - Screaming [Unknown]
  - Aggression [Unknown]
  - Irritability [Unknown]
  - Abnormal behaviour [Unknown]
  - Crying [Unknown]
  - Anger [Unknown]
  - Inappropriate affect [Unknown]

NARRATIVE: CASE EVENT DATE: 20191011
